FAERS Safety Report 5902543-8 (Version None)
Quarter: 2008Q3

REPORT INFORMATION
  Report Type: 
  Country: None (occurrence: None)
  Receive Date: 20080929
  Receipt Date: 20080925
  Transmission Date: 20090109
  Serious: Yes (Hospitalization, Other)
  Sender: FDA-Public Use
  Company Number: BR-ABBOTT-06P-020-0330617-00

PATIENT
  Sex: Female

DRUGS (3)
  1. HUMIRA [Suspect]
     Indication: RHEUMATOID ARTHRITIS
     Route: 058
     Dates: start: 20040101, end: 20060322
  2. DEFLAZACORT [Concomitant]
     Indication: RHEUMATOID ARTHRITIS
     Route: 048
  3. HEPARIN [Concomitant]
     Indication: DRUG USE FOR UNKNOWN INDICATION
     Dates: end: 20060510

REACTIONS (9)
  - BRONCHITIS CHRONIC [None]
  - CHEMODECTOMA [None]
  - CYTOMEGALOVIRUS MONONUCLEOSIS [None]
  - HEADACHE [None]
  - HEPATITIS [None]
  - INTERSTITIAL LUNG DISEASE [None]
  - PERICARDITIS [None]
  - PNEUMONIA [None]
  - PULMONARY EMBOLISM [None]
